FAERS Safety Report 4373544-9 (Version None)
Quarter: 2004Q1

REPORT INFORMATION
  Report Type: 
  Country: None (occurrence: None)
  Receive Date: 20040305
  Receipt Date: 20031106
  Transmission Date: 20041129
  Serious: Yes (Other)
  Sender: FDA-Public Use
  Company Number: 2003UW14621

PATIENT
  Age: 66 Year
  Sex: Male
  Weight: 86.1834 kg

DRUGS (2)
  1. CRESTOR [Suspect]
     Indication: BLOOD CHOLESTEROL INCREASED
     Dosage: 10 MG
     Dates: start: 20031001
  2. NEXIUM [Concomitant]

REACTIONS (4)
  - EYE PRURITUS [None]
  - POLLAKIURIA [None]
  - RHINORRHOEA [None]
  - THROAT IRRITATION [None]
